FAERS Safety Report 10793830 (Version 1)
Quarter: 2015Q1

REPORT INFORMATION
  Report Type: Spontaneous
  Country: US (occurrence: US)
  Receive Date: 20150213
  Receipt Date: 20150213
  Transmission Date: 20150721
  Serious: No
  Sender: FDA-Public Use
  Company Number: US-TEVA-537560USA

PATIENT
  Age: 64 Year
  Sex: Female
  Weight: 61.29 kg

DRUGS (2)
  1. VENTOLIN [Concomitant]
     Active Substance: ALBUTEROL SULFATE
  2. QVAR [Suspect]
     Active Substance: BECLOMETHASONE DIPROPIONATE
     Indication: CHRONIC OBSTRUCTIVE PULMONARY DISEASE
     Dosage: 160 MICROGRAM DAILY;
     Route: 055
     Dates: start: 201411

REACTIONS (7)
  - Thinking abnormal [Not Recovered/Not Resolved]
  - Feeling abnormal [Unknown]
  - Anxiety [Not Recovered/Not Resolved]
  - Vertigo [Unknown]
  - Drug withdrawal syndrome [Unknown]
  - Dysphonia [Not Recovered/Not Resolved]
  - Throat irritation [Not Recovered/Not Resolved]

NARRATIVE: CASE EVENT DATE: 201412
